FAERS Safety Report 4478418-0 (Version None)
Quarter: 2004Q4

REPORT INFORMATION
  Report Type: 
  Country: None (occurrence: None)
  Receive Date: 20041018
  Receipt Date: 20041018
  Transmission Date: 20050328
  Serious: Yes (Death)
  Sender: FDA-Public Use
  Company Number: None

PATIENT
  Age: 25 Year
  Sex: Female
  Weight: 50 kg

DRUGS (1)
  1. AMITRIPTYLINE HCL [Suspect]
     Indication: COMPLETED SUICIDE
     Dosage: 2000 MG SINGLE DOSE BUCCAL
     Route: 002

REACTIONS (1)
  - COMPLETED SUICIDE [None]
